FAERS Safety Report 7297901-6 (Version None)
Quarter: 2011Q1

REPORT INFORMATION
  Report Type: 
  Country: None (occurrence: None)
  Receive Date: 20110217
  Receipt Date: 20101217
  Transmission Date: 20110831
  Serious: No
  Sender: FDA-Public Use
  Company Number: US-KINGPHARMUSA00001-K201001516

PATIENT
  Age: 78 Year
  Sex: Female
  Weight: 52.154 kg

DRUGS (2)
  1. FLECTOR [Suspect]
     Indication: BACK PAIN
     Dosage: 1 PATCH, 12H QHS
     Route: 061
     Dates: start: 20101201, end: 20101216
  2. FENTANYL [Concomitant]
     Indication: BACK PAIN
     Dosage: UNK
     Route: 061

REACTIONS (2)
  - APPLICATION SITE RASH [None]
  - APPLICATION SITE PRURITUS [None]
